FAERS Safety Report 6970550-2 (Version None)
Quarter: 2010Q3

REPORT INFORMATION
  Report Type: 
  Country: None (occurrence: None)
  Receive Date: 20100908
  Receipt Date: 20100825
  Transmission Date: 20110219
  Serious: Yes (Other)
  Sender: FDA-Public Use
  Company Number: US-ROCHE-723841

PATIENT
  Sex: Female

DRUGS (4)
  1. PEGINTERFERON ALFA-2A [Suspect]
     Indication: HEPATITIS C
     Dosage: FORM: INJECTABLE
     Route: 065
     Dates: start: 20100730
  2. PEGINTERFERON ALFA-2A [Suspect]
     Dosage: DOSE INCREASED, WEEK 4 OF TREATMENT
     Route: 065
     Dates: start: 20100820
  3. RIBASPHERE [Suspect]
     Indication: HEPATITIS C
     Route: 048
     Dates: start: 20100730
  4. RIBASPHERE [Suspect]
     Dosage: DOSE INCREASED, WEEK 4 OF TREATMENT
     Route: 048
     Dates: start: 20100720

REACTIONS (5)
  - ASCITES [None]
  - HEPATIC CIRRHOSIS [None]
  - LIVER INJURY [None]
  - PLATELET COUNT DECREASED [None]
  - VARICES OESOPHAGEAL [None]
